FAERS Safety Report 19888239 (Version 2)
Quarter: 2022Q1

REPORT INFORMATION
  Report Type: Other
  Country: CA (occurrence: CA)
  Receive Date: 20210927
  Receipt Date: 20220224
  Transmission Date: 20220423
  Serious: Yes (Hospitalization, Other)
  Sender: FDA-Public Use
  Company Number: CA-GLENMARK PHARMACEUTICALS-2021GMK068033

PATIENT

DRUGS (22)
  1. EZETIMIBE [Suspect]
     Active Substance: EZETIMIBE
     Indication: Low density lipoprotein abnormal
     Dosage: UNK
     Route: 065
  2. ICOSAPENT ETHYL [Suspect]
     Active Substance: ICOSAPENT ETHYL
     Indication: Low density lipoprotein abnormal
     Dosage: UNK
     Route: 065
  3. FLUVASTATIN SODIUM [Suspect]
     Active Substance: FLUVASTATIN SODIUM
     Indication: Low density lipoprotein abnormal
     Dosage: UNK
     Route: 065
  4. LIPITOR [Suspect]
     Active Substance: ATORVASTATIN CALCIUM
     Indication: Low density lipoprotein abnormal
     Route: 065
  5. COLESEVELAM HYDROCHLORIDE [Suspect]
     Active Substance: COLESEVELAM HYDROCHLORIDE
     Indication: Low density lipoprotein abnormal
     Dosage: UNK (POWDER FOR SUSPENSION ORAL)
     Route: 065
  6. COLESEVELAM HYDROCHLORIDE [Suspect]
     Active Substance: COLESEVELAM HYDROCHLORIDE
     Indication: Low density lipoprotein abnormal
     Dosage: UNK
     Route: 065
  7. COLESEVELAM HYDROCHLORIDE [Suspect]
     Active Substance: COLESEVELAM HYDROCHLORIDE
     Indication: Low density lipoprotein abnormal
     Dosage: UNK
     Route: 065
  8. LOMITAPIDE MESYLATE [Suspect]
     Active Substance: LOMITAPIDE MESYLATE
     Indication: Low density lipoprotein abnormal
     Dosage: UNK
     Route: 065
  9. MEVACOR [Suspect]
     Active Substance: LOVASTATIN
     Indication: Low density lipoprotein abnormal
     Dosage: UNK
     Route: 065
  10. MEVACOR [Suspect]
     Active Substance: LOVASTATIN
     Indication: Low density lipoprotein abnormal
     Dosage: UNK
     Route: 065
  11. NIACIN [Suspect]
     Active Substance: NIACIN
     Indication: Low density lipoprotein abnormal
     Dosage: UNK
     Route: 065
  12. CHOLESTYRAMINE [Suspect]
     Active Substance: CHOLESTYRAMINE
     Indication: Low density lipoprotein abnormal
     Dosage: UNK (POWDER FOR SUSPENSION ORAL)
     Route: 048
  13. CHOLESTYRAMINE [Suspect]
     Active Substance: CHOLESTYRAMINE
     Indication: Low density lipoprotein abnormal
     Dosage: UNK
     Route: 065
  14. PRALUENT [Suspect]
     Active Substance: ALIROCUMAB
     Indication: Low density lipoprotein abnormal
     Dosage: UNK
     Route: 058
  15. PRALUENT [Suspect]
     Active Substance: ALIROCUMAB
     Indication: Low density lipoprotein abnormal
     Dosage: UNK
     Route: 065
  16. PRAVASTATIN SODIUM [Suspect]
     Active Substance: PRAVASTATIN SODIUM
     Indication: Low density lipoprotein abnormal
     Dosage: UNK
     Route: 065
  17. PRAVASTATIN SODIUM [Suspect]
     Active Substance: PRAVASTATIN SODIUM
     Indication: Low density lipoprotein abnormal
     Dosage: UNK
     Route: 065
  18. REPATHA [Suspect]
     Active Substance: EVOLOCUMAB
     Indication: Low density lipoprotein abnormal
     Dosage: 1.0 MILLILITER
     Route: 058
  19. REPATHA [Suspect]
     Active Substance: EVOLOCUMAB
     Indication: Low density lipoprotein abnormal
     Dosage: UNK
     Route: 065
  20. ROSUVASTATIN CALCIUM [Suspect]
     Active Substance: ROSUVASTATIN CALCIUM
     Indication: Low density lipoprotein abnormal
     Dosage: UNK
     Route: 065
  21. ZOCOR [Suspect]
     Active Substance: SIMVASTATIN
     Indication: Low density lipoprotein abnormal
     Dosage: UNK
     Route: 065
  22. ZOCOR [Suspect]
     Active Substance: SIMVASTATIN
     Indication: Low density lipoprotein abnormal
     Dosage: UNK
     Route: 065

REACTIONS (3)
  - Myocardial infarction [Unknown]
  - Cerebrovascular accident [Unknown]
  - Drug ineffective [Unknown]
